FAERS Safety Report 6262968-0 (Version None)
Quarter: 2009Q3

REPORT INFORMATION
  Report Type: 
  Country: None (occurrence: None)
  Receive Date: 20090710
  Receipt Date: 20090630
  Transmission Date: 20100115
  Serious: Yes (Other)
  Sender: FDA-Public Use
  Company Number: US-JNJCH-2009015769

PATIENT
  Age: 53 Year
  Sex: Female
  Weight: 44 kg

DRUGS (1)
  1. LISTERINE TOTAL CARE ANTICAVITY MOUTHWASH [Suspect]
     Indication: DENTAL DISORDER PROPHYLAXIS
     Dosage: TEXT:ONCE NIGHTLY, 2 NIGHTS IN A ROW
     Route: 048
     Dates: start: 20090605, end: 20090606

REACTIONS (3)
  - APPLICATION SITE BURN [None]
  - GLOSSODYNIA [None]
  - TONGUE DISCOLOURATION [None]
